FAERS Safety Report 7432917-8 (Version None)
Quarter: 2011Q2

REPORT INFORMATION
  Report Type: 
  Country: None (occurrence: None)
  Receive Date: 20110422
  Receipt Date: 20110419
  Transmission Date: 20111010
  Serious: Yes (Hospitalization)
  Sender: FDA-Public Use
  Company Number: US-PFIZER INC-2010112655

PATIENT
  Sex: Female

DRUGS (2)
  1. CHANTIX [Suspect]
     Dosage: UNK
     Route: 048
     Dates: start: 20100901, end: 20101001
  2. CHANTIX [Suspect]
     Dosage: UNK
     Dates: start: 20110301

REACTIONS (3)
  - MALAISE [None]
  - RASH [None]
  - PAIN [None]
